FAERS Safety Report 6596776-8 (Version None)
Quarter: 2010Q1

REPORT INFORMATION
  Report Type: 
  Country: None (occurrence: None)
  Receive Date: 20100212
  Receipt Date: 20100204
  Transmission Date: 20100710
  Serious: Yes (Death)
  Sender: FDA-Public Use
  Company Number: 2009US004172

PATIENT
  Age: 60 Year
  Sex: Female

DRUGS (11)
  1. PROGRAF [Suspect]
     Indication: LIVER TRANSPLANT
     Dosage: 1 MG, BID
     Dates: start: 20011001, end: 20090301
  2. CELLCEPT [Concomitant]
  3. FLORINEF [Concomitant]
  4. DAPSONE [Concomitant]
  5. ZEMPLAR [Concomitant]
  6. PROCRIT [Concomitant]
  7. HUMULIN 70/30 (INSULIN HUMAN, INSULIN HUMAN INJECTION, ISOPHANE) [Concomitant]
  8. CLONIDINE [Concomitant]
  9. MINOXIDIL [Concomitant]
  10. LISINOPRIL [Concomitant]
  11. AVAPRO [Concomitant]

REACTIONS (2)
  - CARDIO-RESPIRATORY ARREST [None]
  - RENAL FAILURE CHRONIC [None]
